FAERS Safety Report 8924790 (Version 1)
Quarter: 2012Q4

REPORT INFORMATION
  Report Type: 
  Country: US (occurrence: US)
  Receive Date: 20121126
  Receipt Date: 20121126
  Transmission Date: 20130627
  Serious: No
  Sender: FDA-Public Use
  Company Number: US-PFIZER INC-2012290998

PATIENT
  Age: 70 Year
  Sex: Female

DRUGS (2)
  1. INLYTA [Suspect]
     Indication: CARCINOMA KIDNEY
     Dosage: (2) 1 mg tablets with (1) 5 mg tablet. Total 7 mg BID
     Dates: start: 20120719
  2. INLYTA [Suspect]

REACTIONS (1)
  - Malaise [Unknown]
